FAERS Safety Report 5342644-9 (Version None)
Quarter: 2007Q2

REPORT INFORMATION
  Report Type: 
  Country: None (occurrence: None)
  Receive Date: 20070601
  Receipt Date: 20070525
  Transmission Date: 20071010
  Serious: Yes (Other)
  Sender: FDA-Public Use
  Company Number: CA-BOEHRINGER INGELHEIM PHARMACEUTICALS, INC.-2007-DE-03130GD

PATIENT

DRUGS (3)
  1. DIPYRIDAMOL/ASS [Suspect]
     Indication: CEREBRAL ISCHAEMIA
     Dosage: 25 MG ASA/200 MG DIPYRIDAMOLE
  2. DIPYRIDAMOL/ASS [Suspect]
     Dosage: 50 MG ASA/400 MG DIPYRIDAMOLE
  3. ACETYLSALICYLIC ACID SRT [Suspect]
     Indication: CEREBRAL ISCHAEMIA

REACTIONS (2)
  - DISEASE RECURRENCE [None]
  - DRUG INEFFECTIVE [None]
